FAERS Safety Report 9524527 (Version 1)
Quarter: 2013Q3

REPORT INFORMATION
  Report Type: Spontaneous
  Country: US (occurrence: US)
  Receive Date: 20130916
  Receipt Date: 20130916
  Transmission Date: 20140515
  Serious: No
  Sender: FDA-Public Use
  Company Number: US-PFIZER INC-2013265597

PATIENT
  Age: 50 Year
  Sex: Male
  Weight: 81.63 kg

DRUGS (1)
  1. NEURONTIN [Suspect]
     Indication: AFFECTIVE DISORDER
     Dosage: UNK

REACTIONS (5)
  - Off label use [Unknown]
  - Oesophageal disorder [Unknown]
  - Nausea [Unknown]
  - Throat irritation [Unknown]
  - Dizziness [Unknown]
